FAERS Safety Report 10573360 (Version 2)
Quarter: 2014Q4

REPORT INFORMATION
  Report Type: Spontaneous
  Country: IT (occurrence: IT)
  Receive Date: 20141110
  Receipt Date: 20141215
  Transmission Date: 20150529
  Serious: Yes (Life-Threatening)
  Sender: FDA-Public Use
  Company Number: IT-SA-2014SA152067

PATIENT
  Sex: Female

DRUGS (1)
  1. FERLIXIT [Suspect]
     Active Substance: SODIUM FERRIC GLUCONATE COMPLEX
     Indication: ANAEMIA
     Dosage: SOLUTION FOR ORAL USE AND INTRAVENOUS USE DOSE:2 UNIT(S)
     Route: 042
     Dates: start: 20141017, end: 20141018

REACTIONS (4)
  - Hypotension [Recovered/Resolved]
  - Syncope [Recovered/Resolved]
  - Abdominal pain upper [Recovered/Resolved]
  - Hypotonia [Recovered/Resolved]

NARRATIVE: CASE EVENT DATE: 20141018
